FAERS Safety Report 6923129-2 (Version None)
Quarter: 2010Q3

REPORT INFORMATION
  Report Type: 
  Country: None (occurrence: None)
  Receive Date: 20100811
  Receipt Date: 20100723
  Transmission Date: 20110219
  Serious: Yes (Death, Other)
  Sender: FDA-Public Use
  Company Number: 2010AP001565

PATIENT
  Age: 14 Year
  Sex: Male

DRUGS (8)
  1. CYCLOSPORINE [Suspect]
     Indication: PROPHYLAXIS AGAINST GRAFT VERSUS HOST DISEASE
  2. PHENYTOIN [Suspect]
  3. BUSULFAN [Concomitant]
  4. CYCLOPHOSPHAMIDE [Concomitant]
  5. ANTITHYMOCYTE [Concomitant]
  6. IMMUNE GLOBULIN NOS [Concomitant]
  7. MESNA [Concomitant]
  8. PREDNISONE [Concomitant]

REACTIONS (6)
  - CONVULSION [None]
  - DIABETES INSIPIDUS [None]
  - FAILURE TO THRIVE [None]
  - HAEMORRHAGE INTRACRANIAL [None]
  - MULTI-ORGAN FAILURE [None]
  - SEPSIS [None]
